FAERS Safety Report 8967834 (Version 2)
Quarter: 2014Q2

REPORT INFORMATION
  Report Type: Spontaneous
  Country: AU (occurrence: AU)
  Receive Date: 20121218
  Receipt Date: 20131018
  Transmission Date: 20141212
  Serious: Yes (Hospitalization, Other)
  Sender: FDA-Public Use
  Company Number: AU-PFIZER INC-2012306730

PATIENT
  Sex: Male

DRUGS (3)
  1. DILANTIN [Suspect]
     Dosage: 300 MG, 2X/DAY
     Dates: start: 1980
  2. WARFARIN [Interacting]
  3. CLEXANE [Interacting]
     Dosage: UNK

REACTIONS (10)
  - Arthropathy [Unknown]
  - Drug interaction [Unknown]
  - Convulsion [Unknown]
  - Deep vein thrombosis [Unknown]
  - Toxicity to various agents [Unknown]
  - Dizziness [Unknown]
  - Anticonvulsant drug level increased [Unknown]
  - Fall [Unknown]
  - Facial bones fracture [Unknown]
  - Anticonvulsant drug level decreased [Unknown]
